FAERS Safety Report 5406454-6 (Version None)
Quarter: 2007Q3

REPORT INFORMATION
  Report Type: 
  Country: None (occurrence: None)
  Receive Date: 20070713
  Receipt Date: 20061109
  Transmission Date: 20080115
  Serious: Yes (Hospitalization)
  Sender: FDA-Public Use
  Company Number: NSADSS2003022269

PATIENT
  Age: 30 Year
  Sex: Female

DRUGS (3)
  1. ORTHO EVRA [Suspect]
     Indication: CONTRACEPTION
     Dosage: 1 DOSE(S), 3 IN 4 WEEK, TRANSDERMAL
     Route: 062
     Dates: start: 20030101, end: 20030301
  2. SKELAXIN [Concomitant]
  3. TYLENOL W/ CODEINE NO. 3 [Concomitant]

REACTIONS (1)
  - DEEP VEIN THROMBOSIS [None]
